FAERS Safety Report 7208361-5 (Version None)
Quarter: 2011Q1

REPORT INFORMATION
  Report Type: 
  Country: None (occurrence: None)
  Receive Date: 20110104
  Receipt Date: 20101222
  Transmission Date: 20110831
  Serious: Yes (Hospitalization)
  Sender: FDA-Public Use
  Company Number: PHHY2010US89516

PATIENT
  Sex: Female

DRUGS (8)
  1. SALBUTAMOL [Concomitant]
  2. TERIPARATIDE [Concomitant]
  3. ERGOCALCIFEROL [Concomitant]
     Dosage: UNK
     Dates: start: 19950101
  4. CALCIUM [Concomitant]
     Dosage: UNK
  5. PREVACID [Concomitant]
     Dosage: UNK
     Dates: start: 20080101
  6. ZOLEDRONIC ACID [Suspect]
     Indication: OSTEOPOROSIS
     Dosage: UNK
     Dates: start: 20101201
  7. VITAMIN D [Concomitant]
     Dosage: UNK
  8. MUCINEX [Concomitant]
     Dosage: UNK
     Dates: start: 20070101

REACTIONS (1)
  - ASTHMA [None]
